FAERS Safety Report 25994205 (Version 1)
Quarter: 2025Q4

REPORT INFORMATION
  Report Type: Spontaneous
  Country: EU (occurrence: EU)
  Receive Date: 20251104
  Receipt Date: 20251104
  Transmission Date: 20260118
  Serious: Yes (Other)
  Sender: TAKEDA
  Company Number: EU-TAKEDA-2025TUS096098

PATIENT
  Sex: Male

DRUGS (1)
  1. LIVTENCITY [Suspect]
     Active Substance: MARIBAVIR
     Indication: Product used for unknown indication
     Dosage: 800 MILLIGRAM, QD

REACTIONS (3)
  - Cytomegalovirus infection reactivation [Unknown]
  - Drug ineffective [Unknown]
  - Off label use [Unknown]
